FAERS Safety Report 6489937-X (Version None)
Quarter: 2009Q4

REPORT INFORMATION
  Report Type: 
  Country: None (occurrence: None)
  Receive Date: 20091211
  Receipt Date: 20091130
  Transmission Date: 20100525
  Serious: Yes (Other)
  Sender: FDA-Public Use
  Company Number: US-JNJFOC-20091200601

PATIENT
  Sex: Male

DRUGS (1)
  1. INFLIXIMAB [Suspect]
     Indication: DRUG USE FOR UNKNOWN INDICATION
     Dosage: DOSE, DATES AND FREQUENCY UNSPECIFIED
     Route: 042
     Dates: end: 20081001

REACTIONS (1)
  - SYSTEMIC LUPUS ERYTHEMATOSUS [None]
